FAERS Safety Report 10428240 (Version 1)
Quarter: 2014Q3

REPORT INFORMATION
  Report Type: Spontaneous
  Country: US (occurrence: US)
  Receive Date: 20140903
  Receipt Date: 20140903
  Transmission Date: 20150326
  Serious: No
  Sender: FDA-Public Use
  Company Number: US-PFIZER INC-2014242448

PATIENT
  Sex: Male

DRUGS (6)
  1. DILANTIN [Suspect]
     Active Substance: PHENYTOIN
     Indication: COMPLEX PARTIAL SEIZURES
     Dosage: 300 MG (AS THREE CAPSULES OF 100 MG), 1X/DAY
     Route: 048
     Dates: start: 20140822, end: 20140825
  2. ENALAPRIL [Concomitant]
     Active Substance: ENALAPRIL
     Dosage: 10 MG, UNK
  3. HYDROCHLOROTHIAZIDE. [Concomitant]
     Active Substance: HYDROCHLOROTHIAZIDE
     Dosage: 25 MG, UNK
  4. ZOLPIDEM [Concomitant]
     Active Substance: ZOLPIDEM\ZOLPIDEM TARTRATE
     Dosage: 5 MG, UNK
  5. FLONASE [Concomitant]
     Active Substance: FLUTICASONE PROPIONATE
     Dosage: 50 UG, UNK
     Route: 045
  6. DILANTIN [Suspect]
     Active Substance: PHENYTOIN
     Dosage: 300 MG (AS THREE CAPSULES OF 100 MG), 1X/DAY
     Route: 048
     Dates: start: 201408

REACTIONS (1)
  - Anticonvulsant drug level increased [Unknown]

NARRATIVE: CASE EVENT DATE: 201408
